FAERS Safety Report 5749062-X (Version None)
Quarter: 2008Q2

REPORT INFORMATION
  Report Type: 
  Country: None (occurrence: None)
  Receive Date: 20080527
  Receipt Date: 20080522
  Transmission Date: 20081010
  Serious: Yes (Death)
  Sender: FDA-Public Use
  Company Number: US-BRISTOL-MYERS SQUIBB COMPANY-14201560

PATIENT

DRUGS (3)
  1. ERBITUX [Suspect]
     Indication: HEPATIC NEOPLASM MALIGNANT
  2. GEMZAR [Suspect]
     Indication: HEPATIC NEOPLASM MALIGNANT
  3. PLATINUM [Suspect]
     Indication: HEPATIC NEOPLASM MALIGNANT

REACTIONS (1)
  - DEATH [None]
